FAERS Safety Report 9628412 (Version 2)
Quarter: 2014Q1

REPORT INFORMATION
  Report Type: Spontaneous
  Country: US (occurrence: US)
  Receive Date: 20131017
  Receipt Date: 20140129
  Transmission Date: 20141002
  Serious: No
  Sender: FDA-Public Use
  Company Number: US-PFIZER INC-2013293685

PATIENT
  Age: 62 Year
  Sex: Female
  Weight: 73.47 kg

DRUGS (2)
  1. TOVIAZ [Suspect]
     Indication: HYPERTONIC BLADDER
     Dosage: 8 MG, DAILY
     Dates: start: 2010
  2. BYSTOLIC [Concomitant]
     Indication: HYPERTENSION
     Dosage: 5 MG, DAILY
     Dates: start: 2006

REACTIONS (4)
  - Constipation [Recovered/Resolved]
  - Dry mouth [Recovered/Resolved]
  - Product quality issue [Unknown]
  - Drug ineffective [Unknown]
